FAERS Safety Report 4315960-7 (Version None)
Quarter: 2004Q1

REPORT INFORMATION
  Report Type: 
  Country: None (occurrence: None)
  Receive Date: 20040311
  Receipt Date: 20040311
  Transmission Date: 20041129
  Serious: Yes (Disabling)
  Sender: FDA-Public Use
  Company Number: None

PATIENT
  Age: 22 Year
  Sex: Male
  Weight: 157.8518 kg

DRUGS (6)
  1. ABILIFY [Suspect]
     Indication: SCHIZOAFFECTIVE DISORDER
     Dosage: 30 MGX/PER DAY ORALLY 047
     Route: 048
     Dates: start: 20040205
  2. ABILIFY [Suspect]
     Indication: SCHIZOAFFECTIVE DISORDER
     Dosage: 30 MGX/PER DAY ORALLY 047
     Route: 048
     Dates: start: 20040229
  3. ZOLOFT [Concomitant]
  4. SEROQUEL [Concomitant]
  5. TOPAMAX [Concomitant]
  6. PROLIXIN [Concomitant]

REACTIONS (3)
  - BIPOLAR DISORDER [None]
  - CONSTIPATION [None]
  - SCHIZOAFFECTIVE DISORDER [None]
